FAERS Safety Report 11605685 (Version 1)
Quarter: 2015Q4

REPORT INFORMATION
  Report Type: Spontaneous
  Country: US (occurrence: US)
  Receive Date: 20151007
  Receipt Date: 20151007
  Transmission Date: 20160304
  Serious: No
  Sender: FDA-Public Use
  Company Number: US-TORRENT-00000996

PATIENT
  Sex: Female

DRUGS (1)
  1. ESCITALOPRAM OXALATE TABLETS 10 MG [Suspect]
     Active Substance: ESCITALOPRAM OXALATE
     Indication: PRODUCT USED FOR UNKNOWN INDICATION

REACTIONS (4)
  - Product substitution issue [Unknown]
  - Abdominal discomfort [Unknown]
  - Irritability [Unknown]
  - Agitation [Unknown]
